FAERS Safety Report 4875013-6 (Version None)
Quarter: 2006Q1

REPORT INFORMATION
  Report Type: 
  Country: None (occurrence: None)
  Receive Date: 20060105
  Receipt Date: 20051227
  Transmission Date: 20060701
  Serious: Yes (Hospitalization)
  Sender: FDA-Public Use
  Company Number: 13104

PATIENT
  Age: 50 Year
  Sex: Female
  Weight: 92.4 kg

DRUGS (2)
  1. CYTARABINE [Suspect]
     Indication: ACUTE MYELOID LEUKAEMIA RECURRENT
     Dosage: 3.3 G BID IV
     Route: 042
     Dates: start: 20041012, end: 20041016
  2. CEP-701 [Suspect]
     Indication: ACUTE MYELOID LEUKAEMIA RECURRENT
     Dosage: 80 MG BID PO
     Route: 048
     Dates: start: 20041018, end: 20041124

REACTIONS (2)
  - ESCHERICHIA BACTERAEMIA [None]
  - FEBRILE NEUTROPENIA [None]
